FAERS Safety Report 4636956-1 (Version None)
Quarter: 2005Q2

REPORT INFORMATION
  Report Type: 
  Country: None (occurrence: None)
  Receive Date: 20050414
  Receipt Date: 20050221
  Transmission Date: 20051028
  Serious: Yes (Congenital Anomaly)
  Sender: FDA-Public Use
  Company Number: 10356

PATIENT
  Sex: Female

DRUGS (1)
  1. METHOTREXATE [Suspect]
     Indication: ABORTION INDUCED

REACTIONS (8)
  - DRUG EXPOSURE DURING PREGNANCY [None]
  - FOETAL DISORDER [None]
  - HYPERTELORISM OF ORBIT [None]
  - JOINT DISLOCATION [None]
  - LOW SET EARS [None]
  - OFF LABEL USE [None]
  - SKULL MALFORMATION [None]
  - SYNDACTYLY [None]
